FAERS Safety Report 5892269-1 (Version None)
Quarter: 2008Q3

REPORT INFORMATION
  Report Type: 
  Country: None (occurrence: None)
  Receive Date: 20080919
  Receipt Date: 20080904
  Transmission Date: 20090109
  Serious: Yes (Death)
  Sender: FDA-Public Use
  Company Number: 15870

PATIENT
  Age: 74 Year
  Sex: Female

DRUGS (4)
  1. MORPHINE SULFATE [Suspect]
     Indication: PAIN
     Dates: start: 20080325
  2. VICODIN (ACETAMINOPHEN/HYDROCODONE) [Concomitant]
  3. ATIVAN [Concomitant]
  4. FENTANYL [Concomitant]

REACTIONS (1)
  - DEATH [None]
